FAERS Safety Report 7930446-6 (Version None)
Quarter: 2011Q4

REPORT INFORMATION
  Report Type: 
  Country: None (occurrence: None)
  Receive Date: 20111121
  Receipt Date: 20110818
  Transmission Date: 20120403
  Serious: No
  Sender: FDA-Public Use
  Company Number: US-BAYER-2011-079246

PATIENT
  Sex: Female

DRUGS (3)
  1. ALEVE (CAPLET) [Suspect]
  2. SUDAFED 12 HOUR [Concomitant]
  3. IBUPROFEN (ADVIL) [Concomitant]

REACTIONS (1)
  - NO ADVERSE EVENT [None]
